FAERS Safety Report 9392308 (Version 2)
Quarter: 2013Q3

REPORT INFORMATION
  Report Type: Report from Study
  Country: IT (occurrence: IT)
  Receive Date: 20130710
  Receipt Date: 20130903
  Transmission Date: 20140515
  Serious: Yes (Other)
  Sender: FDA-Public Use
  Company Number: IT-ROCHE-1238795

PATIENT
  Age: 68 Year
  Sex: Female
  Weight: 66 kg

DRUGS (7)
  1. TOCILIZUMAB [Suspect]
     Indication: RHEUMATOID ARTHRITIS
     Route: 050
     Dates: start: 20120315, end: 20121206
  2. TOCILIZUMAB [Suspect]
     Route: 050
     Dates: start: 20120412, end: 20121206
  3. REUMAFLEX [Suspect]
     Indication: RHEUMATOID ARTHRITIS
     Route: 058
     Dates: start: 20120412, end: 20121206
  4. REUMAFLEX [Suspect]
     Route: 058
     Dates: start: 20100921, end: 20121206
  5. REUMAFLEX [Suspect]
     Route: 058
     Dates: start: 20100921, end: 2013
  6. PREDNISONE [Concomitant]
     Route: 048
     Dates: start: 20120315
  7. METHOTREXATE [Concomitant]
     Route: 058
     Dates: start: 20100921

REACTIONS (3)
  - Hepatic neoplasm [Unknown]
  - Aspartate aminotransferase increased [Not Recovered/Not Resolved]
  - Alanine aminotransferase increased [Not Recovered/Not Resolved]
